FAERS Safety Report 26123921 (Version 1)
Quarter: 2025Q4

REPORT INFORMATION
  Report Type: Spontaneous
  Country: GB (occurrence: GB)
  Receive Date: 20251205
  Receipt Date: 20251205
  Transmission Date: 20260118
  Serious: Yes (Other)
  Sender: TEVA
  Company Number: GB-TEVA-VS-3399101

PATIENT
  Age: 42 Year
  Sex: Male

DRUGS (2)
  1. METHYLPHENIDATE HYDROCHLORIDE [Suspect]
     Active Substance: METHYLPHENIDATE HYDROCHLORIDE
     Indication: Product used for unknown indication
     Dosage: EACH MORNING
     Route: 065
     Dates: start: 20250910
  2. CONCERTA [Concomitant]
     Active Substance: METHYLPHENIDATE HYDROCHLORIDE
     Indication: Attention deficit hyperactivity disorder
     Dosage: CONCERTA XL, ONCE DAILY

REACTIONS (5)
  - Cognitive disorder [Recovering/Resolving]
  - Blepharospasm [Unknown]
  - Dry mouth [Recovering/Resolving]
  - Palpitations [Recovering/Resolving]
  - Coordination abnormal [Recovering/Resolving]
